FAERS Safety Report 4479366-2 (Version None)
Quarter: 2004Q4

REPORT INFORMATION
  Report Type: 
  Country: None (occurrence: None)
  Receive Date: 20041015
  Receipt Date: 20041006
  Transmission Date: 20050328
  Serious: No
  Sender: FDA-Public Use
  Company Number: 2004235498US

PATIENT
  Age: 45 Year
  Sex: Male

DRUGS (4)
  1. CLEOCIN HCL [Suspect]
     Indication: CHRONIC SINUSITIS
  2. AVELOX [Suspect]
     Indication: CHRONIC SINUSITIS
     Dosage: ORAL
     Route: 048
  3. AUGMENTIN '125' [Suspect]
     Indication: CHRONIC SINUSITIS
  4. TEQUIN [Suspect]
     Indication: CHRONIC SINUSITIS

REACTIONS (7)
  - ADVERSE DRUG REACTION [None]
  - ASCITES [None]
  - ASPARTATE AMINOTRANSFERASE INCREASED [None]
  - DIALYSIS [None]
  - JAUNDICE [None]
  - LIVER DISORDER [None]
  - MULTI-ORGAN FAILURE [None]
